FAERS Safety Report 5935029-5 (Version None)
Quarter: 2008Q4

REPORT INFORMATION
  Report Type: 
  Country: None (occurrence: None)
  Receive Date: 20081024
  Receipt Date: 20081017
  Transmission Date: 20090506
  Serious: Yes (Hospitalization)
  Sender: FDA-Public Use
  Company Number: 592424

PATIENT
  Age: 79 Year
  Sex: Female

DRUGS (11)
  1. TOREM (TORASEMIDE) 5 MG [Suspect]
     Indication: DRUG USE FOR UNKNOWN INDICATION
     Dosage: 5 MG DAILY ORAL
     Route: 048
     Dates: start: 20080601, end: 20080901
  2. TRIATEC (RAMIPRIL) 2.5 MG [Suspect]
     Indication: DRUG USE FOR UNKNOWN INDICATION
     Dosage: 2.5 MG DAILY ORAL
     Route: 048
     Dates: start: 20080601, end: 20080901
  3. ATORVASTATIN CALCIUM [Suspect]
     Indication: DRUG USE FOR UNKNOWN INDICATION
     Dosage: 40 MG DAILY ORAL
     Route: 048
     Dates: start: 20080601, end: 20080901
  4. DETRUSITOL (TOLTERODINE) 4 MG [Suspect]
     Indication: DRUG USE FOR UNKNOWN INDICATION
     Dosage: 4 MG DAILY ORAL
     Route: 048
     Dates: start: 20080601, end: 20080901
  5. VALVERDE BALDRIAN HOPFEN (VALERIANA OFFICINALIS) [Suspect]
     Indication: DRUG USE FOR UNKNOWN INDICATION
     Dosage: 2 DOSE FORM 1 PER 1 DAY ORAL
     Route: 048
     Dates: start: 20080601, end: 20080901
  6. PARAGOL (LIQUID PARAFFIN/PHENOLPHTHALEIN) [Suspect]
     Indication: DRUG USE FOR UNKNOWN INDICATION
     Dosage: ORAL
     Route: 048
     Dates: start: 20080601, end: 20080901
  7. ASPIRIN [Concomitant]
  8. BISOPROLOL FUMARATE [Concomitant]
  9. CALCIUM (CALCIUM CARBONATE/CALCIUM GLUBIONATE/CA.CIUM GLUCONATE/CALCII [Concomitant]
  10. LUDIOMIL [Concomitant]
  11. EFFEXOR XR [Concomitant]

REACTIONS (4)
  - HEPATIC NECROSIS [None]
  - HEPATITIS [None]
  - HEPATOCELLULAR INJURY [None]
  - HYPERBILIRUBINAEMIA [None]
